FAERS Safety Report 24042293 (Version 1)
Quarter: 2024Q3

REPORT INFORMATION
  Report Type: Spontaneous
  Country: US (occurrence: US)
  Receive Date: 20240702
  Receipt Date: 20240702
  Transmission Date: 20241016
  Serious: Yes (Life-Threatening, Other)
  Sender: COVIS PHARMA
  Company Number: US-Covis Pharma GmbH-2024COV00819

PATIENT
  Age: 4 Year
  Sex: Female

DRUGS (1)
  1. FERAHEME [Suspect]
     Active Substance: FERUMOXYTOL NON-STOICHIOMETRIC MAGNETITE
     Indication: Magnetic resonance imaging

REACTIONS (2)
  - Anaphylactic reaction [Unknown]
  - Off label use [Unknown]
